FAERS Safety Report 10046094 (Version 1)
Quarter: 2014Q1

REPORT INFORMATION
  Report Type: Spontaneous
  Country: US (occurrence: None)
  Receive Date: 20140326
  Receipt Date: 20140326
  Transmission Date: 20141002
  Serious: Yes (Other)
  Sender: FDA-Public Use
  Company Number: SYM-2014-18825

PATIENT
  Age: 21 Year
  Sex: Female

DRUGS (13)
  1. TETRABENAZINE [Suspect]
     Dosage: 150 MG, 1 IN 1 D
  2. TOPIRAMATE (TOPIRAMATE) [Suspect]
     Dosage: 225 MG, 1 IN 1 D
  3. CLONIDINE (CLONIDINE) [Suspect]
  4. FLUPHENAZINE [Suspect]
     Dosage: 3 MG, 1 IN 1 D
  5. GUANFACINE [Suspect]
  6. BACLOFEN (BACLOFEN) [Suspect]
  7. METAXALONE (METAXALONE) [Suspect]
  8. UNSPECIFIED [Suspect]
  9. METHYLPHENIDATE [Suspect]
  10. UNSPECIFIED [Suspect]
  11. BOTULINUM TOXIN TYPE A [Suspect]
  12. ARIPIPRAZOLE (ARIPIPRAZOLE) [Suspect]
  13. UNSPECIFIED [Suspect]

REACTIONS (5)
  - Herpes zoster [None]
  - Pain [None]
  - Hypokinesia [None]
  - Parkinsonism [None]
  - Coprolalia [None]
